FAERS Safety Report 6264640-X (Version None)
Quarter: 2009Q3

REPORT INFORMATION
  Report Type: 
  Country: None (occurrence: None)
  Receive Date: 20090710
  Receipt Date: 20090702
  Transmission Date: 20100115
  Serious: Yes (Other)
  Sender: FDA-Public Use
  Company Number: PHHY2009JP26378

PATIENT
  Age: 70 Year
  Sex: Female

DRUGS (1)
  1. TEGRETOL [Suspect]
     Indication: HYPOAESTHESIA
     Dosage: 200 MG/DAY
     Route: 048
     Dates: start: 20090601

REACTIONS (2)
  - ARTICULAR CALCIFICATION [None]
  - MUSCULAR WEAKNESS [None]
